FAERS Safety Report 9733598 (Version 1)
Quarter: 2013Q4

REPORT INFORMATION
  Report Type: Spontaneous
  Country: LB (occurrence: LB)
  Receive Date: 20131205
  Receipt Date: 20131205
  Transmission Date: 20140711
  Serious: Yes (Life-Threatening, Other)
  Sender: FDA-Public Use
  Company Number: LB-GLAXOSMITHKLINE-B0950049A

PATIENT
  Age: 36 Year
  Sex: Female

DRUGS (1)
  1. SERETIDE 50MCG/250MCG [Suspect]
     Indication: CHRONIC OBSTRUCTIVE PULMONARY DISEASE
     Dosage: 9PUFF PER DAY
     Route: 055
     Dates: start: 20131126, end: 20131126

REACTIONS (5)
  - Chest pain [Recovering/Resolving]
  - Nausea [Recovering/Resolving]
  - Vomiting [Recovering/Resolving]
  - Tachycardia [Recovering/Resolving]
  - Diastolic hypertension [Recovering/Resolving]
